FAERS Safety Report 8512094-2 (Version None)
Quarter: 2012Q2

REPORT INFORMATION
  Report Type: 
  Country: None (occurrence: None)
  Receive Date: 20120405
  Receipt Date: 20080808
  Transmission Date: 20120825
  Serious: Yes (Disabling, Other)
  Sender: FDA-Public Use
  Company Number: PHEH2008US06348

PATIENT
  Age: 64 Year
  Sex: Female
  Weight: 51.7 kg

DRUGS (11)
  1. LOMOTIL [Concomitant]
  2. CALCIUM CARBONATE [Concomitant]
  3. BENTYL [Concomitant]
  4. ALDACTONE [Concomitant]
  5. CRESTOR [Concomitant]
  6. PREMARIN [Concomitant]
  7. MICRO-K (POTASSIUM CHLORIDE) [Concomitant]
  8. FLEXERIL [Concomitant]
  9. VITAMIN E [Concomitant]
  10. RECLAST [Suspect]
     Indication: OSTEOPOROSIS
     Dosage: 5 MG OVER 15 MINUTES, INFUSION
     Dates: start: 20080711, end: 20080711
  11. ASPIRIN [Concomitant]

REACTIONS (4)
  - PAIN [None]
  - NAUSEA [None]
  - DECREASED APPETITE [None]
  - BACK PAIN [None]
